FAERS Safety Report 16697714 (Version 1)
Quarter: 2019Q3

REPORT INFORMATION
  Report Type: Spontaneous
  Country: US (occurrence: US)
  Receive Date: 20190628
  Receipt Date: 20190628
  Transmission Date: 20191004
  Serious: Yes (Hospitalization)
  Sender: FDA-Public Use
  Company Number: None

PATIENT
  Age: 57 Year
  Sex: Female
  Weight: 81.65 kg

DRUGS (1)
  1. TRULICITY [Suspect]
     Active Substance: DULAGLUTIDE
     Indication: DIABETES MELLITUS
     Dosage: ?          OTHER STRENGTH:1.5MG/0.5ML;QUANTITY:2;OTHER ROUTE:INJECTION?
     Dates: start: 20190328, end: 20190502

REACTIONS (1)
  - Emergency care [None]

NARRATIVE: CASE EVENT DATE: 20190502
